FAERS Safety Report 7372409-8 (Version None)
Quarter: 2011Q1

REPORT INFORMATION
  Report Type: 
  Country: None (occurrence: None)
  Receive Date: 20110316
  Receipt Date: 20110304
  Transmission Date: 20110831
  Serious: Yes (Hospitalization)
  Sender: FDA-Public Use
  Company Number: DAV-AE-AMP-11-001

PATIENT
  Age: 58 Year
  Sex: Male

DRUGS (5)
  1. AMPICILLIN [Suspect]
     Indication: PROPHYLAXIS
     Dosage: 2 G
  2. GENTAMICIN [Concomitant]
  3. PROMETHAZINE [Concomitant]
  4. CIPROFLOXACIN [Concomitant]
  5. KETOROLAC TROMETHAMINE [Concomitant]

REACTIONS (3)
  - CHROMOSOME ANALYSIS ABNORMAL [None]
  - TUBULOINTERSTITIAL NEPHRITIS [None]
  - NEPHROSCLEROSIS [None]
